FAERS Safety Report 10742326 (Version 2)
Quarter: 2015Q1

REPORT INFORMATION
  Report Type: Spontaneous
  Country: US (occurrence: US)
  Receive Date: 20150127
  Receipt Date: 20150204
  Transmission Date: 20150721
  Serious: No
  Sender: FDA-Public Use
  Company Number: US-GILEAD-2015-0134038

PATIENT
  Age: 73 Year
  Sex: Female

DRUGS (1)
  1. LETAIRIS [Suspect]
     Active Substance: AMBRISENTAN
     Indication: PRODUCT USED FOR UNKNOWN INDICATION
     Route: 065
     Dates: start: 20141023

REACTIONS (6)
  - Influenza [Unknown]
  - Sinus disorder [Unknown]
  - Ageusia [Unknown]
  - Swelling [Unknown]
  - Sinusitis [Unknown]
  - Dyspnoea [Unknown]
